FAERS Safety Report 4346120-1 (Version None)
Quarter: 2004Q1

REPORT INFORMATION
  Report Type: 
  Country: None (occurrence: None)
  Receive Date: 20040325
  Receipt Date: 20031205
  Transmission Date: 20041129
  Serious: No
  Sender: FDA-Public Use
  Company Number: USA031254157

PATIENT
  Age: 72 Year
  Sex: Female
  Weight: 42 kg

DRUGS (9)
  1. FORTEO [Suspect]
     Indication: OSTEOPOROSIS
     Dates: start: 20031009
  2. FOLIC ACID [Concomitant]
  3. PRILOSEC [Concomitant]
  4. PRAVACHOL [Concomitant]
  5. METOPROLOL SUCCINATE [Concomitant]
  6. ENBREL [Concomitant]
  7. METHOTREXATE [Concomitant]
  8. VIOXX [Concomitant]
  9. ENSURE [Concomitant]

REACTIONS (1)
  - TINNITUS [None]
